FAERS Safety Report 17431075 (Version 1)
Quarter: 2020Q1

REPORT INFORMATION
  Report Type: Spontaneous
  Country: US (occurrence: US)
  Receive Date: 20200217
  Receipt Date: 20200217
  Transmission Date: 20200409
  Serious: Yes (Life-Threatening, Hospitalization)
  Sender: FDA-Public Use
  Company Number: None

PATIENT
  Age: 41 Year
  Sex: Male
  Weight: 139.95 kg

DRUGS (7)
  1. SEROQUEL [Concomitant]
     Active Substance: QUETIAPINE FUMARATE
  2. BASSGULAR [Concomitant]
  3. ABILIFY [Concomitant]
     Active Substance: ARIPIPRAZOLE
  4. ASTROVASTATIN [Suspect]
     Active Substance: ATORVASTATIN CALCIUM
     Indication: BODY FAT DISORDER
     Dosage: ?          QUANTITY:65 TABLET(S);?
     Route: 048
     Dates: start: 20200208, end: 20200210
  5. NOVOLOG [Concomitant]
     Active Substance: INSULIN ASPART
  6. ASTROVASTATIN [Suspect]
     Active Substance: ATORVASTATIN CALCIUM
     Indication: LOW DENSITY LIPOPROTEIN INCREASED
     Dosage: ?          QUANTITY:65 TABLET(S);?
     Route: 048
     Dates: start: 20200208, end: 20200210
  7. TRULICITY [Concomitant]
     Active Substance: DULAGLUTIDE

REACTIONS (1)
  - Adverse reaction [None]

NARRATIVE: CASE EVENT DATE: 20200210
